FAERS Safety Report 7587538-3 (Version None)
Quarter: 2011Q3

REPORT INFORMATION
  Report Type: 
  Country: None (occurrence: None)
  Receive Date: 20110704
  Receipt Date: 20110620
  Transmission Date: 20111222
  Serious: Yes (Other)
  Sender: FDA-Public Use
  Company Number: PHHY2011JP55298

PATIENT
  Age: 44 Year
  Sex: Female

DRUGS (9)
  1. CYCLOSPORINE [Suspect]
     Indication: LUNG TRANSPLANT
     Dosage: 350 MG,DAILY
  2. PREDNISOLONE [Concomitant]
     Dosage: 40 MG, DAILY
  3. PREDNISOLONE [Concomitant]
     Dosage: 100 MG, DAILY
  4. ANTIVIRALS NOS [Concomitant]
  5. SULFAMETHOXAZOLE AND TRIMETHOPRIM [Concomitant]
  6. AZATHIOPRINE [Concomitant]
     Dosage: 1.5 MG/KG
  7. PREDNISOLONE [Concomitant]
     Dosage: 5 MG, DAILLY
  8. ANTIFUNGAL DRUGS [Concomitant]
  9. AZATHIOPRINE [Concomitant]
     Dosage: 0.5 MG/KG,

REACTIONS (8)
  - LUNG INFILTRATION [None]
  - ACUTE LUNG INJURY [None]
  - VASCULITIS [None]
  - LUNG CONSOLIDATION [None]
  - INFLAMMATION [None]
  - ORGANISING PNEUMONIA [None]
  - LEUKOCYTOSIS [None]
  - DYSPNOEA [None]
